FAERS Safety Report 8478532-9 (Version None)
Quarter: 2012Q2

REPORT INFORMATION
  Report Type: 
  Country: None (occurrence: None)
  Receive Date: 20120629
  Receipt Date: 20120620
  Transmission Date: 20120825
  Serious: Yes (Hospitalization)
  Sender: FDA-Public Use
  Company Number: CA-JNJFOC-20120610462

PATIENT
  Sex: Male
  Weight: 69.5 kg

DRUGS (2)
  1. REMICADE [Suspect]
     Indication: CROHN'S DISEASE
     Dosage: THIRD LOADING DOSE
     Route: 042
     Dates: start: 20120501
  2. REMICADE [Suspect]
     Route: 042

REACTIONS (4)
  - COLECTOMY [None]
  - HAEMOGLOBIN DECREASED [None]
  - FISTULA [None]
  - DIZZINESS [None]
